FAERS Safety Report 14624682 (Version 1)
Quarter: 2018Q1

REPORT INFORMATION
  Report Type: Spontaneous
  Country: US (occurrence: US)
  Receive Date: 20180312
  Receipt Date: 20180312
  Transmission Date: 20180509
  Serious: No
  Sender: FDA-Public Use
  Company Number: US-PFIZER INC-2018093453

PATIENT
  Sex: Female

DRUGS (4)
  1. NORVASC [Suspect]
     Active Substance: AMLODIPINE BESYLATE
     Dosage: UNK
     Dates: start: 201702
  2. COZAAR [Concomitant]
     Active Substance: LOSARTAN POTASSIUM
     Dosage: UNK
  3. WARFARIN SODIUM. [Suspect]
     Active Substance: WARFARIN SODIUM
     Indication: PULMONARY EMBOLISM
     Dosage: 3.5 MG, 1X/DAY (EVERY DAY, ORALLY IN THE EVENING)
     Route: 048
     Dates: start: 201702
  4. EPLERENONE. [Concomitant]
     Active Substance: EPLERENONE
     Dosage: UNK

REACTIONS (4)
  - Abdominal discomfort [Unknown]
  - Nervousness [Recovered/Resolved]
  - Tremor [Unknown]
  - Insomnia [Recovered/Resolved]

NARRATIVE: CASE EVENT DATE: 20180222
